FAERS Safety Report 17524454 (Version 1)
Quarter: 2020Q1

REPORT INFORMATION
  Report Type: Report from Study
  Country: NL (occurrence: NL)
  Receive Date: 20200308
  Receipt Date: 20200308
  Transmission Date: 20200409
  Serious: Yes (Hospitalization)
  Sender: FDA-Public Use
  Company Number: NVSC2020NL064468

PATIENT
  Age: 49 Year
  Sex: Male

DRUGS (1)
  1. SANDOSTATINE LAR [Suspect]
     Active Substance: OCTREOTIDE ACETATE
     Indication: ACROMEGALY
     Dosage: 30MG/2ML, ONCE EVERY 3 WEEKS
     Route: 030

REACTIONS (4)
  - Prostatitis [Not Recovered/Not Resolved]
  - Inappropriate schedule of product administration [Unknown]
  - Inflammation [Unknown]
  - Dysuria [Not Recovered/Not Resolved]

NARRATIVE: CASE EVENT DATE: 20200301
